FAERS Safety Report 5766690-6 (Version None)
Quarter: 2008Q2

REPORT INFORMATION
  Report Type: 
  Country: None (occurrence: None)
  Receive Date: 20080610
  Receipt Date: 20080610
  Transmission Date: 20081010
  Serious: Yes (Life-Threatening, Other)
  Sender: FDA-Public Use
  Company Number: None

PATIENT
  Age: 60 Year
  Sex: Female
  Weight: 74.8435 kg

DRUGS (1)
  1. FEXOFENADINE HCL [Suspect]
     Indication: HYPERSENSITIVITY
     Dosage: 180 MG TABLET 1 DAILY PO
     Route: 048
     Dates: start: 20080512, end: 20080527

REACTIONS (2)
  - MAJOR DEPRESSION [None]
  - SUICIDAL BEHAVIOUR [None]
